FAERS Safety Report 25768684 (Version 1)
Quarter: 2025Q3

REPORT INFORMATION
  Report Type: Report from Study
  Country: EU (occurrence: EU)
  Receive Date: 20250905
  Receipt Date: 20250905
  Transmission Date: 20251021
  Serious: Yes (Other)
  Sender: ABBVIE
  Company Number: EU-ABBVIE-6444749

PATIENT
  Age: 81 Year
  Sex: Male

DRUGS (10)
  1. FOSCARBIDOPA\FOSLEVODOPA [Suspect]
     Active Substance: FOSCARBIDOPA\FOSLEVODOPA
     Indication: Parkinson^s disease
     Route: 058
  2. Tanydon [Concomitant]
     Indication: Hypertension
     Dosage: 40 MILLIGRAM
     Route: 048
     Dates: start: 2015
  3. ASPIRIN [Concomitant]
     Active Substance: ASPIRIN
     Indication: Prophylaxis
     Dosage: 100 MILLIGRAM,?FIRST ADMIN DATE: 2020
     Route: 048
  4. BISOPROLOL FUMARATE [Concomitant]
     Active Substance: BISOPROLOL FUMARATE
     Indication: Bradycardia
     Dosage: 2.5 MILLIGRAM.?FIRST ADMIN DATE: MAR 2025
     Route: 048
     Dates: end: 20250823
  5. PAROXETINE HYDROCHLORIDE [Concomitant]
     Active Substance: PAROXETINE HYDROCHLORIDE
     Indication: Apathy
     Dosage: 20 MILLIGRAM.?FIRST ADMIN DATE: 2023
     Route: 048
  6. Rutascorbin [Concomitant]
     Indication: Contusion
     Route: 048
  7. Lopiden [Concomitant]
     Indication: Hypertension
     Dosage: 1.5 MILLIGRAM.?FIRST ADMIN DATE: 2015
     Route: 048
  8. FAMOTIDINE [Concomitant]
     Active Substance: FAMOTIDINE
     Indication: Gastrooesophageal reflux disease
     Dosage: 40 MILLIGRAM.?FIRST ADMIN DATE: 2020
     Route: 048
  9. Tanyz Eras [Concomitant]
     Indication: Benign prostatic hyperplasia
     Dosage: 0.4 MILLIGRAM.?FIRST ADMIN DATE: 2024
     Route: 048
  10. DARIFENACIN HYDROBROMIDE [Concomitant]
     Active Substance: DARIFENACIN HYDROBROMIDE
     Indication: Benign prostatic hyperplasia
     Dosage: 7.5 MILLIGRAM
     Route: 048
     Dates: start: 2024

REACTIONS (4)
  - Loss of consciousness [Recovered/Resolved]
  - Parkinson^s disease [Unknown]
  - Bradycardia [Unknown]
  - Autonomic nervous system imbalance [Unknown]

NARRATIVE: CASE EVENT DATE: 20250822
